FAERS Safety Report 8508286-9 (Version None)
Quarter: 2012Q3

REPORT INFORMATION
  Report Type: 
  Country: None (occurrence: None)
  Receive Date: 20120713
  Receipt Date: 20120705
  Transmission Date: 20120928
  Serious: Yes (Hospitalization)
  Sender: FDA-Public Use
  Company Number: CA-JNJFOC-20120703142

PATIENT
  Sex: Female
  Weight: 53.98 kg

DRUGS (6)
  1. REMICADE [Suspect]
     Indication: CROHN'S DISEASE
     Route: 042
     Dates: start: 20120208
  2. ACTONEL [Concomitant]
     Route: 065
  3. ORTHO TRI-CYCLEN [Concomitant]
     Route: 048
  4. PENTASA [Concomitant]
     Dosage: 500MG 2 TABLETS THRICE A DAY
     Route: 048
  5. EXTRA STRENGTH TYLENOL [Concomitant]
     Dosage: 2 TABLETS EVERY 4 HOURLY
     Route: 048
  6. VITAMIN D [Concomitant]
     Route: 048

REACTIONS (4)
  - NAUSEA [None]
  - DIARRHOEA [None]
  - ASTHENIA [None]
  - VOMITING [None]
